FAERS Safety Report 9714017 (Version 1)
Quarter: 2013Q4

REPORT INFORMATION
  Report Type: Spontaneous
  Country: US (occurrence: US)
  Receive Date: 20131126
  Receipt Date: 20131126
  Transmission Date: 20140711
  Serious: No
  Sender: FDA-Public Use
  Company Number: US-GILEAD-2008-0018589

PATIENT
  Sex: Male
  Weight: 135.17 kg

DRUGS (8)
  1. LETAIRIS [Suspect]
     Indication: PULMONARY ARTERIAL HYPERTENSION
     Route: 048
  2. ALLOPURINOL [Concomitant]
     Route: 048
  3. BUMEX [Concomitant]
     Route: 048
  4. MIRAPEX [Concomitant]
     Route: 048
  5. CELEBREX [Concomitant]
  6. COUMADIN [Concomitant]
     Route: 048
  7. ASACOL [Concomitant]
     Route: 048
  8. POTASSIUM CHLORIDE [Concomitant]

REACTIONS (1)
  - Oedema peripheral [Unknown]
